FAERS Safety Report 9949522 (Version 1)
Quarter: 2014Q1

REPORT INFORMATION
  Report Type: Report from Study
  Country: US (occurrence: US)
  Receive Date: 20140304
  Receipt Date: 20140304
  Transmission Date: 20141002
  Serious: No
  Sender: FDA-Public Use
  Company Number: US-ABBVIE-13P-163-1066316-00

PATIENT
  Age: 62 Year
  Sex: Female

DRUGS (9)
  1. HUMIRA [Suspect]
     Indication: RHEUMATOID ARTHRITIS
     Dosage: INITIAL DOSE
     Dates: start: 20130315
  2. VERAPAMIL [Concomitant]
     Indication: VASCULAR HEADACHE
     Dosage: DAILY
  3. VERAPAMIL [Concomitant]
     Indication: MIGRAINE PROPHYLAXIS
  4. FOLIC ACID [Concomitant]
     Indication: VITAMIN SUPPLEMENTATION
  5. ASPIRIN [Concomitant]
     Indication: CARDIOVASCULAR EVENT PROPHYLAXIS
  6. DEXILANT [Concomitant]
     Indication: GASTROOESOPHAGEAL REFLUX DISEASE
     Dosage: DAILY
  7. RESTASIS [Concomitant]
     Indication: DRY EYE
     Dosage: EYES DROP AT NIGHT
  8. RESTASIS [Concomitant]
     Indication: SJOGREN^S SYNDROME
  9. PROAIR HFA [Concomitant]
     Indication: ASTHMA
     Dosage: AS NEEDED

REACTIONS (2)
  - Feeling abnormal [Recovered/Resolved]
  - Headache [Recovered/Resolved]
